FAERS Safety Report 4676521-3 (Version None)
Quarter: 2005Q2

REPORT INFORMATION
  Report Type: 
  Country: None (occurrence: None)
  Receive Date: 20050527
  Receipt Date: 20050412
  Transmission Date: 20051028
  Serious: Yes (Other)
  Sender: FDA-Public Use
  Company Number: PHBS2005JP05301

PATIENT
  Age: 56 Year
  Sex: Female

DRUGS (3)
  1. LAMISIL /00992602/ [Concomitant]
     Route: 061
  2. LAMISIL [Suspect]
     Indication: NAIL TINEA
     Dosage: UNK, UNK
     Route: 048
     Dates: start: 20040701, end: 20050401
  3. CALVAN [Concomitant]
     Route: 048

REACTIONS (2)
  - BREAST CANCER FEMALE [None]
  - BREAST DISCOMFORT [None]
